FAERS Safety Report 5705234-1 (Version None)
Quarter: 2008Q2

REPORT INFORMATION
  Report Type: 
  Country: None (occurrence: None)
  Receive Date: 20080411
  Receipt Date: 20080325
  Transmission Date: 20081010
  Serious: Yes (Hospitalization)
  Sender: FDA-Public Use
  Company Number: M-07-0299

PATIENT
  Age: 71 Year
  Sex: Female

DRUGS (13)
  1. PACERONE [Suspect]
     Indication: ATRIAL FIBRILLATION
     Dosage: 200 MG, QD, PO
     Route: 048
     Dates: start: 20061201, end: 20080301
  2. PACERONE [Suspect]
     Indication: ATRIAL FIBRILLATION
     Dosage: 200 MG, BID, PO/ 4 TO 5 DAYS
     Route: 048
  3. LEVAQUIN [Suspect]
     Indication: DRUG USE FOR UNKNOWN INDICATION
     Dosage: PO
     Route: 048
  4. COUMADIN [Concomitant]
  5. PROTONIX [Concomitant]
  6. SYNTHROID [Concomitant]
  7. ALPRAZOLAM [Concomitant]
  8. DOCUSATE CALCIUM [Concomitant]
  9. VITAMIN B1 [Concomitant]
  10. CALCIUM/VITAMIN D [Concomitant]
  11. NITROGLYCERIN [Concomitant]
  12. METOPROLOL TARTRATE [Concomitant]
  13. CYTOMEL [Concomitant]

REACTIONS (23)
  - ABDOMINAL PAIN [None]
  - BLOOD URINE PRESENT [None]
  - CHEST PAIN [None]
  - CHOKING [None]
  - CHOKING SENSATION [None]
  - CONVULSION [None]
  - CORNEAL DEPOSITS [None]
  - DIARRHOEA [None]
  - DYSPNOEA [None]
  - EYE DISORDER [None]
  - HEART RATE DECREASED [None]
  - HYPERHIDROSIS [None]
  - HYPERTENSION [None]
  - LIVER DISORDER [None]
  - LIVER FUNCTION TEST ABNORMAL [None]
  - MENTAL DISORDER [None]
  - MUSCLE DISORDER [None]
  - NIGHT SWEATS [None]
  - PAIN [None]
  - PALPITATIONS [None]
  - PANIC ATTACK [None]
  - PHARYNGOLARYNGEAL PAIN [None]
  - TREMOR [None]
